FAERS Safety Report 4870168-1 (Version None)
Quarter: 2005Q4

REPORT INFORMATION
  Report Type: 
  Country: None (occurrence: None)
  Receive Date: 20051228
  Receipt Date: 20051213
  Transmission Date: 20060501
  Serious: Yes (Hospitalization)
  Sender: FDA-Public Use
  Company Number: 200512IM000821

PATIENT
  Age: 37 Year
  Sex: Female

DRUGS (4)
  1. INFERAX (INTERFERON ALFACON-1) [Suspect]
     Indication: HEPATITIS C
     Dosage: 9 UG, UNK, SUBCUTANEOUS
     Route: 058
     Dates: start: 20050607, end: 20051122
  2. RIBAVIRIN [Concomitant]
  3. CETIRIZINE [Concomitant]
  4. AMITRIPTYLINE HCL [Concomitant]

REACTIONS (1)
  - HYPERGLYCAEMIA [None]
